FAERS Safety Report 7794345-5 (Version None)
Quarter: 2011Q4

REPORT INFORMATION
  Report Type: 
  Country: None (occurrence: None)
  Receive Date: 20111004
  Receipt Date: 20110927
  Transmission Date: 20120403
  Serious: Yes (Other)
  Sender: FDA-Public Use
  Company Number: US-PFIZER INC-2011211689

PATIENT
  Sex: Female
  Weight: 72.6 kg

DRUGS (6)
  1. LEVOTHYROXINE SODIUM [Concomitant]
     Indication: THYROIDECTOMY
     Dosage: 88 UG, DAILY
  2. LIPITOR [Concomitant]
     Indication: BLOOD CHOLESTEROL ABNORMAL
     Dosage: 10 MG, DAILY
  3. LYRICA [Suspect]
     Indication: VOCAL CORD PARALYSIS
     Dosage: 50 MG, 2X/DAY
     Route: 048
     Dates: start: 20080908
  4. ALBUTEROL [Concomitant]
     Dosage: UNK
  5. VIVELLE-DOT [Concomitant]
     Indication: POSTMENOPAUSE
     Dosage: 0.5 MG, 2X/WEEK
     Route: 062
  6. HYCODAN [Concomitant]
     Dosage: UNK

REACTIONS (1)
  - BURSITIS [None]
